FAERS Safety Report 6150083-6 (Version None)
Quarter: 2009Q2

REPORT INFORMATION
  Report Type: 
  Country: None (occurrence: None)
  Receive Date: 20090407
  Receipt Date: 20090407
  Transmission Date: 20091009
  Serious: Yes (Hospitalization)
  Sender: FDA-Public Use
  Company Number: None

PATIENT
  Sex: Female
  Weight: 58.2 kg

DRUGS (4)
  1. CISPLATIN [Suspect]
     Dosage: 80 MG
  2. DOXORUBICIN HCL [Suspect]
     Dosage: 48 MG
  3. G-CSF (FILGRASTIM, AMGEN) [Suspect]
     Dosage: 2400 MCG
  4. TAXOL [Suspect]
     Dosage: 200 MG

REACTIONS (3)
  - BLOOD CULTURE POSITIVE [None]
  - CULTURE URINE POSITIVE [None]
  - PYREXIA [None]
